FAERS Safety Report 4507441-2 (Version None)
Quarter: 2004Q4

REPORT INFORMATION
  Report Type: 
  Country: None (occurrence: None)
  Receive Date: 20041118
  Receipt Date: 20041105
  Transmission Date: 20050328
  Serious: Yes (Hospitalization, Other)
  Sender: FDA-Public Use
  Company Number: HQWYE309809NOV04

PATIENT
  Age: 42 Year
  Sex: Male

DRUGS (18)
  1. RAPAMUNE [Suspect]
     Indication: PROPHYLAXIS AGAINST TRANSPLANT REJECTION
     Dosage: SEE IMAGE
     Dates: start: 20041004, end: 20041105
  2. RAPAMUNE [Suspect]
     Indication: PROPHYLAXIS AGAINST TRANSPLANT REJECTION
     Dosage: SEE IMAGE
     Dates: start: 20040623
  3. RAPAMUNE [Suspect]
  4. ASPIRIN [Concomitant]
  5. BACTRIM [Concomitant]
  6. COLACE (DOCUSATE SODIUM) [Concomitant]
  7. ZANTAC [Concomitant]
  8. CELLCEPT [Concomitant]
  9. MULTIVITAMINS, PLAIN (MULTIVITAMINS, PLAIN) [Concomitant]
  10. VALCYTE [Concomitant]
  11. ZOCOR [Concomitant]
  12. PHOSPHORUS (PHOSPHORUS) [Concomitant]
  13. AMBIEN [Concomitant]
  14. LABETALOL HCL [Concomitant]
  15. PREDNISONE [Concomitant]
  16. PROCARDIA XL [Concomitant]
  17. FERROUS SULFATE TAB [Concomitant]
  18. PROCRIT [Concomitant]

REACTIONS (5)
  - DRUG INEFFECTIVE [None]
  - HAEMATOCRIT DECREASED [None]
  - HAEMOGLOBIN DECREASED [None]
  - IMMUNOSUPPRESSANT DRUG LEVEL INCREASED [None]
  - KIDNEY TRANSPLANT REJECTION [None]
